FAERS Safety Report 7051019-6 (Version None)
Quarter: 2010Q4

REPORT INFORMATION
  Report Type: 
  Country: None (occurrence: None)
  Receive Date: 20101018
  Receipt Date: 20101018
  Transmission Date: 20110411
  Serious: No
  Sender: FDA-Public Use
  Company Number: None

PATIENT
  Age: 18 Year
  Sex: Male
  Weight: 123 kg

DRUGS (1)
  1. METRONIDAZOLE [Suspect]
     Dosage: 500 MG Q6 HOURS IV
     Route: 042
     Dates: start: 20100426

REACTIONS (2)
  - FLUSHING [None]
  - INFUSION RELATED REACTION [None]
